FAERS Safety Report 12633264 (Version 1)
Quarter: 2016Q3

REPORT INFORMATION
  Report Type: Spontaneous
  Country: US (occurrence: None)
  Receive Date: 20160808
  Receipt Date: 20160808
  Transmission Date: 20161109
  Serious: No
  Sender: FDA-Public Use
  Company Number: None

PATIENT
  Age: 65 Year
  Sex: Male

DRUGS (2)
  1. CYCLOSPORINE CAP MOD 25MG [Suspect]
     Active Substance: CYCLOSPORINE
     Indication: PROPHYLAXIS
  2. CYCLOSPORINE CAP MOD 25MG [Suspect]
     Active Substance: CYCLOSPORINE
     Indication: RENAL TRANSPLANT

REACTIONS (1)
  - No adverse event [None]

NARRATIVE: CASE EVENT DATE: 20160805
